FAERS Safety Report 7042597-1 (Version None)
Quarter: 2010Q3

REPORT INFORMATION
  Report Type: 
  Country: None (occurrence: None)
  Receive Date: 20100929
  Receipt Date: 20100811
  Transmission Date: 20110219
  Serious: No
  Sender: FDA-Public Use
  Company Number: US-WYE-H16906510

PATIENT
  Age: 62 Year
  Sex: Female
  Weight: 122.58 kg

DRUGS (24)
  1. PRISTIQ [Suspect]
     Indication: DEPRESSION
     Dosage: 50 MG 1X PER 1 DAY, ORAL; 1/2 TABLET DAILY, ORAL
     Route: 048
     Dates: start: 20100731, end: 20100801
  2. PRISTIQ [Suspect]
     Indication: FIBROMYALGIA
     Dosage: 50 MG 1X PER 1 DAY, ORAL; 1/2 TABLET DAILY, ORAL
     Route: 048
     Dates: start: 20100731, end: 20100801
  3. PRISTIQ [Suspect]
     Indication: DEPRESSION
     Dosage: 50 MG 1X PER 1 DAY, ORAL; 1/2 TABLET DAILY, ORAL
     Route: 048
     Dates: start: 20100801, end: 20100810
  4. PRISTIQ [Suspect]
     Indication: FIBROMYALGIA
     Dosage: 50 MG 1X PER 1 DAY, ORAL; 1/2 TABLET DAILY, ORAL
     Route: 048
     Dates: start: 20100801, end: 20100810
  5. DEMADEX [Suspect]
     Indication: DIURETIC THERAPY
  6. TRAMADOL HCL [Concomitant]
  7. COMBIVENT [Concomitant]
  8. FLONASE [Concomitant]
  9. DYAZIDE [Concomitant]
  10. ACCUPRIL [Concomitant]
  11. ATIVAN [Concomitant]
  12. NEBIVOLOL HCL [Concomitant]
  13. CARDIZDEM (DILTIAZEM HYDROCHLORIDE) [Concomitant]
  14. CORDARONE [Concomitant]
  15. LIPITOR [Concomitant]
  16. PERCOCET [Concomitant]
  17. PREMARIN [Concomitant]
  18. SYNTHROID [Concomitant]
  19. VESICARE [Concomitant]
  20. ELAVIL [Concomitant]
  21. ZANAFLEX [Concomitant]
  22. ESTRACE [Concomitant]
  23. VITAMINS WITH MINERALS (VITAMINS WITH MINERALS) [Concomitant]
  24. COMBIVENT [Concomitant]

REACTIONS (4)
  - CONDITION AGGRAVATED [None]
  - DRUG WITHDRAWAL SYNDROME [None]
  - DYSPNOEA [None]
  - HYPERTENSION [None]
